FAERS Safety Report 11161210 (Version 2)
Quarter: 2024Q3

REPORT INFORMATION
  Report Type: Spontaneous
  Country: US (occurrence: US)
  Receive Date: 20150604
  Receipt Date: 20240828
  Transmission Date: 20241016
  Serious: No
  Sender: SANOFI AVENTIS
  Company Number: US-SA-2014SA075666

PATIENT
  Age: 54 Year
  Sex: Male

DRUGS (2)
  1. LANTUS SOLOSTAR [Suspect]
     Active Substance: INSULIN GLARGINE
     Indication: Type 2 diabetes mellitus
     Dosage: 54 DF,BID
     Dates: start: 201309
  2. LANTUS SOLOSTAR [Suspect]
     Active Substance: INSULIN GLARGINE
     Dosage: 85 IU, BID

REACTIONS (4)
  - Injection site laceration [Unknown]
  - Injection site haemorrhage [Unknown]
  - Device operational issue [Unknown]
  - Off label use [Unknown]

NARRATIVE: CASE EVENT DATE: 20130901
